FAERS Safety Report 25206865 (Version 6)
Quarter: 2025Q2

REPORT INFORMATION
  Report Type: Spontaneous
  Country: CA (occurrence: CA)
  Receive Date: 20250417
  Receipt Date: 20250612
  Transmission Date: 20250717
  Serious: Yes (Death, Other)
  Sender: BIOVITRUM
  Company Number: CA-BIOVITRUM-2025-CA-005364

PATIENT
  Age: 17 Year
  Sex: Male

DRUGS (9)
  1. EMAPALUMAB [Suspect]
     Active Substance: EMAPALUMAB
     Indication: Familial haemophagocytic lymphohistiocytosis
     Route: 042
     Dates: start: 20230728
  2. EMAPALUMAB [Suspect]
     Active Substance: EMAPALUMAB
     Route: 042
     Dates: start: 20230731
  3. EMAPALUMAB [Suspect]
     Active Substance: EMAPALUMAB
     Route: 042
     Dates: start: 20230803
  4. EMAPALUMAB [Suspect]
     Active Substance: EMAPALUMAB
     Route: 042
     Dates: start: 20230807
  5. EMAPALUMAB [Suspect]
     Active Substance: EMAPALUMAB
     Route: 042
     Dates: start: 20230810
  6. EMAPALUMAB [Suspect]
     Active Substance: EMAPALUMAB
     Route: 042
     Dates: start: 20230814
  7. EMAPALUMAB [Suspect]
     Active Substance: EMAPALUMAB
     Route: 042
     Dates: start: 20230817
  8. EMAPALUMAB [Suspect]
     Active Substance: EMAPALUMAB
     Route: 042
     Dates: start: 20230820
  9. EMAPALUMAB [Suspect]
     Active Substance: EMAPALUMAB
     Route: 042
     Dates: start: 20230823

REACTIONS (6)
  - Respiratory failure [Fatal]
  - Haemophagocytic lymphohistiocytosis [Fatal]
  - Sepsis [Fatal]
  - Hepatic failure [Fatal]
  - Condition aggravated [Fatal]
  - Drug ineffective [Unknown]

NARRATIVE: CASE EVENT DATE: 20230817
